FAERS Safety Report 10740185 (Version 1)
Quarter: 2015Q1

REPORT INFORMATION
  Report Type: Report from Study
  Country: CA (occurrence: CA)
  Receive Date: 20150127
  Receipt Date: 20150127
  Transmission Date: 20150721
  Serious: Yes (Hospitalization, Other)
  Sender: FDA-Public Use
  Company Number: CA-UCBSA-112222

PATIENT
  Age: 30 Year
  Sex: Female
  Weight: 64 kg

DRUGS (12)
  1. ELAVIL [Concomitant]
     Active Substance: AMITRIPTYLINE HYDROCHLORIDE
     Dosage: 25 MG, ONCE DAILY (QD)
     Route: 048
     Dates: start: 201405
  2. MATERNA [Concomitant]
     Indication: PREGNANCY
     Dosage: UNK UNK, ONCE DAILY (QD)
     Route: 048
  3. ACETAMINOPHEN. [Concomitant]
     Active Substance: ACETAMINOPHEN
     Indication: ARTHRALGIA
     Dosage: 650 MG, AS NEEDED (PRN) AND QD
     Route: 048
     Dates: start: 201307
  4. DICLECTIN [Concomitant]
     Active Substance: DOXYLAMINE\PYRIDOXINE
     Indication: PREGNANCY
     Dosage: 10 MG, 2X/DAY (BID)
     Dates: start: 20140530
  5. DICLECTIN [Concomitant]
     Active Substance: DOXYLAMINE\PYRIDOXINE
     Indication: NAUSEA
  6. CERTOLIZUMAB PEGOL RA [Suspect]
     Active Substance: CERTOLIZUMAB PEGOL
     Dosage: 200 MG, EV 2 WEEKS(QOW)
     Route: 058
     Dates: start: 20140423, end: 201412
  7. IMITREX [Concomitant]
     Active Substance: SUMATRIPTAN\SUMATRIPTAN SUCCINATE
     Indication: MIGRAINE
     Dosage: UNK, AS NEEDED (PRN)
     Route: 048
  8. DIFLUCAN [Concomitant]
     Active Substance: FLUCONAZOLE
     Indication: CANDIDA INFECTION
     Dosage: 10 DAYS
     Route: 048
     Dates: start: 201412
  9. PLAQUENIL [Concomitant]
     Active Substance: HYDROXYCHLOROQUINE SULFATE
     Indication: RHEUMATOID ARTHRITIS
     Dosage: 400 MG, ONCE DAILY (QD)
     Route: 048
     Dates: start: 201311
  10. CERTOLIZUMAB PEGOL RA [Suspect]
     Active Substance: CERTOLIZUMAB PEGOL
     Indication: RHEUMATOID ARTHRITIS
     Dosage: 400 MG, EV 2 WEEKS(QOW) 3 DOSES
     Route: 058
     Dates: start: 20140130, end: 20140227
  11. ELAVIL [Concomitant]
     Active Substance: AMITRIPTYLINE HYDROCHLORIDE
     Indication: MIGRAINE
     Dosage: AT BED TIME , AS NECESSARY
     Route: 048
     Dates: start: 2008
  12. MATERNA [Concomitant]
     Indication: VITAMIN SUPPLEMENTATION

REACTIONS (9)
  - Abdominal pain [Recovered/Resolved]
  - Urinary tract infection [Not Recovered/Not Resolved]
  - Migraine [Recovered/Resolved]
  - Candida infection [Recovered/Resolved]
  - Breast feeding [Unknown]
  - Paranasal sinus hypersecretion [Recovered/Resolved]
  - Exposure during pregnancy [Unknown]
  - Vomiting [Recovered/Resolved]
  - White blood cell count increased [Recovered/Resolved]

NARRATIVE: CASE EVENT DATE: 2014
